FAERS Safety Report 11161908 (Version 1)
Quarter: 2015Q2

REPORT INFORMATION
  Report Type: Spontaneous
  Country: US (occurrence: US)
  Receive Date: 20150604
  Receipt Date: 20150604
  Transmission Date: 20150821
  Serious: No
  Sender: FDA-Public Use
  Company Number: US-SA-2014SA099151

PATIENT
  Age: 71 Year
  Sex: Female

DRUGS (8)
  1. SOLOSTAR [Concomitant]
     Active Substance: DEVICE
     Dates: start: 201401
  2. ATENOLOL. [Concomitant]
     Active Substance: ATENOLOL
     Indication: CARDIAC DISORDER
     Dates: start: 1990
  3. LANTUS SOLOSTAR [Suspect]
     Active Substance: INSULIN GLARGINE
     Indication: TYPE 2 DIABETES MELLITUS
     Dosage: DOSE:10 UNIT(S)
     Route: 065
     Dates: start: 20140115
  4. LISINOPRIL. [Concomitant]
     Active Substance: LISINOPRIL
  5. GLIMEPIRIDE. [Concomitant]
     Active Substance: GLIMEPIRIDE
     Indication: DIABETES MELLITUS
     Dates: start: 2006
  6. ISOSORBIDE [Concomitant]
     Active Substance: ISOSORBIDE
     Indication: BLOOD PRESSURE
     Dates: start: 1990
  7. PRAVASTATIN [Concomitant]
     Active Substance: PRAVASTATIN\PRAVASTATIN SODIUM
     Indication: CARDIAC DISORDER
     Dates: start: 1990
  8. ZETIA [Concomitant]
     Active Substance: EZETIMIBE
     Indication: BLOOD PRESSURE
     Dates: start: 1990

REACTIONS (6)
  - Pain [Recovered/Resolved]
  - Gait disturbance [Unknown]
  - Fatigue [Unknown]
  - Feeling abnormal [Unknown]
  - Dizziness [Recovered/Resolved]
  - Blood glucose abnormal [Unknown]

NARRATIVE: CASE EVENT DATE: 201402
